FAERS Safety Report 5153413-7 (Version None)
Quarter: 2006Q4

REPORT INFORMATION
  Report Type: 
  Country: None (occurrence: None)
  Receive Date: 20061114
  Receipt Date: 20061106
  Transmission Date: 20070319
  Serious: Yes (Life-Threatening)
  Sender: FDA-Public Use
  Company Number: 805#1#2006-00104

PATIENT
  Age: 87 Year
  Sex: Female

DRUGS (1)
  1. PROSTANDIN -I.V. (ALPROSTADIL) [Suspect]
     Indication: LUMBAR SPINAL STENOSIS
     Dosage: 60 MCG (60 MCG 1 IN 1 DAY(S)); INTRAVENOUS DRIP
     Route: 041
     Dates: start: 20061031, end: 20061031

REACTIONS (1)
  - CARDIAC ARREST [None]
